FAERS Safety Report 5320528-X (Version None)
Quarter: 2007Q2

REPORT INFORMATION
  Report Type: 
  Country: None (occurrence: None)
  Receive Date: 20070502
  Receipt Date: 20070424
  Transmission Date: 20071010
  Serious: Yes (Life-Threatening, Hospitalization)
  Sender: FDA-Public Use
  Company Number: 233229K07USA

PATIENT
  Age: 50 Year
  Sex: Female

DRUGS (9)
  1. REBIF [Suspect]
     Indication: MULTIPLE SCLEROSIS
     Dosage: 44 MCG, 3 IN 1 WEEKS, SUBCUTANEOUS
     Route: 058
     Dates: start: 20060424
  2. IBUPROFEN [Concomitant]
  3. AVONEX [Concomitant]
  4. VICODIN [Concomitant]
  5. PERCOCET [Concomitant]
  6. TRAZODONE HCL [Concomitant]
  7. KEPPRA [Concomitant]
  8. DURAGESIC (FENTANYL /00174601/) [Concomitant]
  9. RELPAX (ELETRIPTAN HYDROBROMIDE) [Concomitant]

REACTIONS (3)
  - CONVULSION [None]
  - DYSPNOEA [None]
  - PAIN [None]
